FAERS Safety Report 11194445 (Version 2)
Quarter: 2015Q3

REPORT INFORMATION
  Report Type: Spontaneous
  Country: PT (occurrence: PT)
  Receive Date: 20150616
  Receipt Date: 20150721
  Transmission Date: 20151125
  Serious: No
  Sender: FDA-Public Use
  Company Number: PT-GILEAD-2015-0158528

PATIENT
  Age: 77 Year
  Sex: Male
  Weight: 60 kg

DRUGS (13)
  1. INDERAL [Concomitant]
     Active Substance: PROPRANOLOL HYDROCHLORIDE
     Indication: ASCITES
     Dosage: 40 MG, QD
     Route: 048
     Dates: start: 201312
  2. FOLICIL [Concomitant]
     Active Substance: FOLIC ACID
     Indication: ASCITES
     Route: 048
     Dates: start: 201305
  3. SPIRIVA [Concomitant]
     Active Substance: TIOTROPIUM BROMIDE MONOHYDRATE
     Indication: CHRONIC OBSTRUCTIVE PULMONARY DISEASE
     Route: 055
  4. SYMBICORT [Concomitant]
     Active Substance: BUDESONIDE\FORMOTEROL FUMARATE DIHYDRATE
     Indication: CHRONIC OBSTRUCTIVE PULMONARY DISEASE
     Route: 055
  5. FUROSEMIDE                         /00032602/ [Concomitant]
     Active Substance: FUROSEMIDE
     Indication: ASCITES
     Dosage: 40 MG, QD
     Route: 048
     Dates: start: 201312
  6. URSOFALK [Concomitant]
     Active Substance: URSODIOL
     Route: 048
     Dates: start: 201206
  7. ALDACTONE [Concomitant]
     Active Substance: SPIRONOLACTONE
     Indication: ASCITES
     Dosage: 150 MG, QD
     Route: 048
     Dates: start: 201312
  8. ESCITALOPRAM [Concomitant]
     Active Substance: ESCITALOPRAM OXALATE
     Route: 048
     Dates: start: 201206
  9. MEDIPAX                            /00243802/ [Concomitant]
     Indication: ANXIETY
     Dosage: 5 MG, QD
     Route: 048
  10. INDERAL [Concomitant]
     Active Substance: PROPRANOLOL HYDROCHLORIDE
     Route: 048
     Dates: start: 201312
  11. ESCITALOPRAM [Concomitant]
     Active Substance: ESCITALOPRAM OXALATE
     Indication: DEPRESSED MOOD
     Route: 048
  12. HARVONI [Suspect]
     Active Substance: LEDIPASVIR\SOFOSBUVIR
     Indication: HEPATITIS C
     Dosage: 1 DF, QD
     Route: 048
     Dates: start: 20150304
  13. URSOFALK [Concomitant]
     Active Substance: URSODIOL
     Indication: ASCITES
     Dosage: 250 MG, BID
     Route: 048
     Dates: start: 201206

REACTIONS (5)
  - Fatigue [Not Recovered/Not Resolved]
  - Abdominal distension [Recovered/Resolved]
  - Oedema peripheral [Unknown]
  - Weight decreased [Recovered/Resolved]
  - Pyrexia [Recovered/Resolved]

NARRATIVE: CASE EVENT DATE: 201503
